FAERS Safety Report 8287121-0 (Version None)
Quarter: 2012Q2

REPORT INFORMATION
  Report Type: 
  Country: None (occurrence: None)
  Receive Date: 20120416
  Receipt Date: 20120307
  Transmission Date: 20120825
  Serious: Yes (Hospitalization)
  Sender: FDA-Public Use
  Company Number: AU-NAPPMUNDI-USA-2008-0033107

PATIENT
  Sex: Male

DRUGS (6)
  1. DIAZEPAM [Concomitant]
  2. NORFLEX [Concomitant]
     Dates: start: 20080206, end: 20080206
  3. ZOMETA [Concomitant]
  4. BUPRENORPHINE [Suspect]
     Indication: PAIN
     Dosage: 10 MCG, Q1H
     Dates: start: 20080206, end: 20080206
  5. MIRTAZAPINE [Concomitant]
  6. VENTOLIN [Concomitant]

REACTIONS (5)
  - DIZZINESS [None]
  - HYPERHIDROSIS [None]
  - VOMITING [None]
  - BLOOD PRESSURE DECREASED [None]
  - NAUSEA [None]
